FAERS Safety Report 7907937 (Version 2)
Quarter: 2014Q2

REPORT INFORMATION
  Report Type: Report from Study
  Country: AU (occurrence: AU)
  Receive Date: 20110421
  Receipt Date: 20140410
  Transmission Date: 20141212
  Serious: No
  Sender: FDA-Public Use
  Company Number: AU-EISAI INC-E7389-00938-CLI-AU

PATIENT
  Age: 69 Year
  Sex: Female
  Weight: 63 kg

DRUGS (1)
  1. ERIBULIN [Suspect]
     Indication: BREAST CANCER
     Route: 041
     Dates: start: 20080610

REACTIONS (1)
  - Infusion site extravasation [Recovered/Resolved]
